FAERS Safety Report 15035374 (Version 1)
Quarter: 2018Q2

REPORT INFORMATION
  Report Type: Report from Study
  Country: DE (occurrence: DE)
  Receive Date: 20180620
  Receipt Date: 20180620
  Transmission Date: 20180711
  Serious: Yes (Other)
  Sender: FDA-Public Use
  Company Number: DE-TEVA-2017-DE-827928

PATIENT
  Age: 74 Year
  Sex: Male

DRUGS (3)
  1. IMATINIB [Suspect]
     Active Substance: IMATINIB
     Indication: CHRONIC MYELOID LEUKAEMIA
     Dosage: 1600 MILLIGRAM DAILY;
     Route: 065
     Dates: start: 201702
  2. GLIVEC [Suspect]
     Active Substance: IMATINIB MESYLATE
     Indication: CHRONIC MYELOID LEUKAEMIA
     Dosage: 400 MG, 4 TIMES A DAY (POSSIBLY REDUCED?)
     Route: 065
     Dates: start: 201610, end: 201702
  3. IMATINIB [Suspect]
     Active Substance: IMATINIB
     Dosage: LESS THAN 400 MG, 4 TIMES A DAY
     Route: 065
     Dates: end: 20171031

REACTIONS (7)
  - Feeling abnormal [Unknown]
  - Asthenia [Unknown]
  - Myalgia [Unknown]
  - Suicidal ideation [Unknown]
  - Bone pain [Recovered/Resolved]
  - Arthralgia [Recovered/Resolved]
  - Listless [Unknown]
